FAERS Safety Report 14071686 (Version 1)
Quarter: 2017Q4

REPORT INFORMATION
  Report Type: Spontaneous
  Country: US (occurrence: US)
  Receive Date: 20171011
  Receipt Date: 20171011
  Transmission Date: 20180321
  Serious: No
  Sender: FDA-Public Use
  Company Number: US-PFIZER INC-2017434923

PATIENT
  Age: 68 Year
  Sex: Female

DRUGS (2)
  1. PROPANOLOL HCL [Suspect]
     Active Substance: PROPRANOLOL HYDROCHLORIDE
     Dosage: 20 MG, 3X/DAY
     Dates: start: 20170425
  2. PROPANOLOL HCL [Suspect]
     Active Substance: PROPRANOLOL HYDROCHLORIDE
     Indication: TREMOR
     Dosage: 10 MG, 3X/DAY

REACTIONS (1)
  - Drug ineffective for unapproved indication [Not Recovered/Not Resolved]
